FAERS Safety Report 15202041 (Version 1)
Quarter: 2018Q3

REPORT INFORMATION
  Report Type: Spontaneous
  Country: JP (occurrence: JP)
  Receive Date: 20180726
  Receipt Date: 20180726
  Transmission Date: 20181010
  Serious: Yes (Hospitalization)
  Sender: FDA-Public Use
  Company Number: JP-JNJFOC-20180729875

PATIENT

DRUGS (1)
  1. XARELTO [Suspect]
     Active Substance: RIVAROXABAN
     Indication: PRODUCT USED FOR UNKNOWN INDICATION
     Dosage: 4 PATIENTS:10MG DAILY, 4 PATIENTS:15MG DAILY
     Route: 048

REACTIONS (3)
  - Treatment noncompliance [Unknown]
  - Embolic cerebral infarction [Unknown]
  - Cerebral infarction [Unknown]
